FAERS Safety Report 19840786 (Version 1)
Quarter: 2021Q3

REPORT INFORMATION
  Report Type: Spontaneous
  Country: FI (occurrence: FI)
  Receive Date: 20210916
  Receipt Date: 20210916
  Transmission Date: 20211014
  Serious: Yes (Hospitalization)
  Sender: FDA-Public Use
  Company Number: FI-GLAXOSMITHKLINE-FI2021EME196225

PATIENT
  Age: 65 Year
  Sex: Female

DRUGS (4)
  1. BISOPROLOL [Concomitant]
     Active Substance: BISOPROLOL
     Indication: TACHYCARDIA
     Dosage: 5 MG, 1D
     Route: 048
     Dates: start: 2011
  2. TREXAN (METHOTREXAT) [Concomitant]
     Indication: RHEUMATOID ARTHRITIS
     Dosage: 2.857 MG, Z EVERY 1 WEEK (20 MG,1 IN 1 WK)
     Route: 048
     Dates: start: 202105
  3. VALACICLOVIR [Suspect]
     Active Substance: VALACYCLOVIR HYDROCHLORIDE
     Indication: HERPES ZOSTER
     Dosage: 3000 MG, 1D
     Dates: start: 20210812, end: 20210815
  4. PREDNISOLON [Concomitant]
     Active Substance: PREDNISOLONE
     Indication: RHEUMATOID ARTHRITIS
     Dosage: 5 MG, 1D
     Route: 048
     Dates: start: 202005

REACTIONS (3)
  - Vomiting [Recovering/Resolving]
  - Headache [Recovering/Resolving]
  - Nausea [Recovering/Resolving]

NARRATIVE: CASE EVENT DATE: 20210813
